FAERS Safety Report 4938515-X (Version None)
Quarter: 2006Q1

REPORT INFORMATION
  Report Type: 
  Country: None (occurrence: None)
  Receive Date: 20060302
  Receipt Date: 20060217
  Transmission Date: 20060701
  Serious: Yes (Hospitalization)
  Sender: FDA-Public Use
  Company Number: 2006027817

PATIENT
  Age: 53 Year
  Sex: Female

DRUGS (3)
  1. IRINOTECAN HCL [Suspect]
     Indication: COLORECTAL CANCER
     Dosage: 130 MG, INTRAVENOUS
     Route: 042
  2. FLUOROURACIL [Concomitant]
  3. CALCIUM LEVOFOLINATE (CALCIUM LEVOFOLINATE) [Concomitant]

REACTIONS (1)
  - LOSS OF CONSCIOUSNESS [None]
